FAERS Safety Report 5656252-3 (Version None)
Quarter: 2008Q1

REPORT INFORMATION
  Report Type: 
  Country: None (occurrence: None)
  Receive Date: 20080305
  Receipt Date: 20080222
  Transmission Date: 20080703
  Serious: Yes (Hospitalization)
  Sender: FDA-Public Use
  Company Number: 2008AL000919

PATIENT
  Age: 7 Year
  Sex: Female

DRUGS (6)
  1. DICLOFENAC SODIUM [Suspect]
     Indication: ANALGESIA
     Dosage: 25 MG; X1; RTL
     Route: 054
     Dates: start: 20041202, end: 20041202
  2. IBUPROFEN [Concomitant]
  3. CEFTRIAXONE [Concomitant]
  4. PARACETAMOL [Concomitant]
  5. ONDANSETRON [Concomitant]
  6. NIFEDIPINE [Concomitant]

REACTIONS (5)
  - BLOOD PRESSURE INCREASED [None]
  - GASTROENTERITIS [None]
  - HYPOVOLAEMIA [None]
  - RENAL FAILURE ACUTE [None]
  - RENAL TUBULAR NECROSIS [None]
